FAERS Safety Report 13936890 (Version 1)
Quarter: 2017Q3

REPORT INFORMATION
  Report Type: Spontaneous
  Country: US (occurrence: US)
  Receive Date: 20170905
  Receipt Date: 20170905
  Transmission Date: 20171127
  Serious: No
  Sender: FDA-Public Use
  Company Number: US-BAYER-2017-167418

PATIENT
  Age: 50 Year
  Sex: Female
  Weight: 85 kg

DRUGS (1)
  1. ALEVE [Suspect]
     Active Substance: NAPROXEN SODIUM
     Indication: PAIN
     Dosage: 1 OR 2 DF,QD
     Route: 048
     Dates: start: 20170619, end: 20170830

REACTIONS (2)
  - Inappropriate schedule of drug administration [None]
  - Drug ineffective [None]

NARRATIVE: CASE EVENT DATE: 20170619
